FAERS Safety Report 7111510-0 (Version None)
Quarter: 2010Q4

REPORT INFORMATION
  Report Type: 
  Country: None (occurrence: None)
  Receive Date: 20101118
  Receipt Date: 20101115
  Transmission Date: 20110411
  Serious: Yes (Other)
  Sender: FDA-Public Use
  Company Number: CHPA2010US17703

PATIENT
  Age: 60 Year
  Sex: Female
  Weight: 90.703 kg

DRUGS (2)
  1. VOLTAREN [Suspect]
     Indication: BACK PAIN
     Dosage: SIZE OF A DIME
     Route: 061
     Dates: start: 20101001, end: 20101001
  2. VOLTAREN [Suspect]
     Indication: ARTHRALGIA

REACTIONS (3)
  - DRUG ADMINISTERED AT INAPPROPRIATE SITE [None]
  - KNEE OPERATION [None]
  - WRONG TECHNIQUE IN DRUG USAGE PROCESS [None]
